FAERS Safety Report 9285634 (Version 1)
Quarter: 2013Q2

REPORT INFORMATION
  Report Type: Spontaneous
  Country: US (occurrence: None)
  Receive Date: 20130507
  Receipt Date: 20130507
  Transmission Date: 20140414
  Serious: Yes (Hospitalization, Other)
  Sender: FDA-Public Use
  Company Number: 2013P1005164

PATIENT
  Age: 50 Year
  Sex: Female

DRUGS (8)
  1. CITALOPRAM [Suspect]
     Indication: POST-TRAUMATIC STRESS DISORDER
  2. BUPROPION [Suspect]
     Indication: POST-TRAUMATIC STRESS DISORDER
  3. LORAZEPAM [Suspect]
     Indication: POST-TRAUMATIC STRESS DISORDER
  4. PAROXETINE [Suspect]
     Indication: POST-TRAUMATIC STRESS DISORDER
  5. PREGABALIN [Suspect]
     Indication: POST-TRAUMATIC STRESS DISORDER
  6. MIRTAZAPINE [Suspect]
     Indication: POST-TRAUMATIC STRESS DISORDER
  7. HORMONE REPLACEMENT THERAPY [Concomitant]
  8. UNSPECIFIED NATUROPATHIC MEDICINE [Concomitant]

REACTIONS (15)
  - Fatigue [None]
  - Loss of libido [None]
  - Suicidal ideation [None]
  - Homicidal ideation [None]
  - Suicide attempt [None]
  - Depression [None]
  - Drug administration error [None]
  - Impaired work ability [None]
  - Constipation [None]
  - Agitation [None]
  - Tachycardia [None]
  - Intentional self-injury [None]
  - Weight increased [None]
  - Central obesity [None]
  - Motor dysfunction [None]
